FAERS Safety Report 17514044 (Version 2)
Quarter: 2020Q1

REPORT INFORMATION
  Report Type: Report from Study
  Country: US (occurrence: US)
  Receive Date: 20200306
  Receipt Date: 20200318
  Transmission Date: 20200409
  Serious: Yes (Hospitalization)
  Sender: FDA-Public Use
  Company Number: US-ACTELION-A-NJ2020-202632

PATIENT
  Age: 70 Year
  Sex: Female

DRUGS (5)
  1. LIPITOR [Concomitant]
     Active Substance: ATORVASTATIN CALCIUM
  2. ASPIRIN. [Concomitant]
     Active Substance: ASPIRIN
  3. OPSUMIT [Suspect]
     Active Substance: MACITENTAN
     Indication: PULMONARY ARTERIAL HYPERTENSION
     Dosage: 10 MG, QD
     Route: 048
     Dates: start: 20200204
  4. ACYCLOVIR. [Concomitant]
     Active Substance: ACYCLOVIR
  5. ADCIRCA [Concomitant]
     Active Substance: TADALAFIL

REACTIONS (7)
  - Swelling [Unknown]
  - Abnormal weight gain [Unknown]
  - Paracentesis [Unknown]
  - Transfusion [Unknown]
  - Dyspnoea [Unknown]
  - Anaemia [Not Recovered/Not Resolved]
  - Peripheral swelling [Not Recovered/Not Resolved]

NARRATIVE: CASE EVENT DATE: 202002
